FAERS Safety Report 10022158 (Version 2)
Quarter: 2014Q1

REPORT INFORMATION
  Report Type: Spontaneous
  Country: FR (occurrence: FR)
  Receive Date: 20140319
  Receipt Date: 20140319
  Transmission Date: 20141002
  Serious: Yes (Death, Life-Threatening)
  Sender: FDA-Public Use
  Company Number: FR-VIIV HEALTHCARE LIMITED-B0539588B

PATIENT
  Age: 0 Year
  Sex: Female
  Weight: 2.4 kg

DRUGS (3)
  1. COMBIVIR [Suspect]
     Indication: HIV INFECTION
     Route: 064
     Dates: start: 20071106, end: 20080719
  2. KALETRA [Suspect]
     Indication: HIV INFECTION
     Route: 064
     Dates: start: 20071106, end: 20080719
  3. RETROVIR [Concomitant]
     Indication: PROPHYLAXIS
     Route: 064
     Dates: start: 200807

REACTIONS (16)
  - Metabolic acidosis [Fatal]
  - Bradycardia foetal [Unknown]
  - Hypothermia [Unknown]
  - Feeding disorder neonatal [Unknown]
  - Tachypnoea [Unknown]
  - Hyperventilation [Unknown]
  - Pallor [Unknown]
  - General physical health deterioration [Unknown]
  - Hypotonia [Unknown]
  - Altered state of consciousness [Unknown]
  - Hepatocellular injury [Unknown]
  - Amino acid level increased [Unknown]
  - Bronchospasm [Unknown]
  - Oxygen saturation decreased [Unknown]
  - Pulmonary arterial hypertension [Unknown]
  - Foetal exposure during pregnancy [Unknown]
